FAERS Safety Report 18188032 (Version 1)
Quarter: 2020Q3

REPORT INFORMATION
  Report Type: Spontaneous
  Country: DE (occurrence: DE)
  Receive Date: 20200824
  Receipt Date: 20200824
  Transmission Date: 20201103
  Serious: Yes (Hospitalization)
  Sender: FDA-Public Use
  Company Number: DE-TEVA-2020-DE-1817128

PATIENT
  Age: 82 Year
  Sex: Male
  Weight: 78 kg

DRUGS (4)
  1. TORASEMID [Suspect]
     Active Substance: TORSEMIDE
     Dosage: 10 MG, AS NEEDED
     Route: 065
  2. EDOXABAN [Suspect]
     Active Substance: EDOXABAN TOSYLATE
     Dosage: 30 MILLIGRAM DAILY; 1?0?0?0
     Route: 065
  3. METAMIZOL [Concomitant]
     Active Substance: METAMIZOLE SODIUM
     Dosage: 500 MG / ML, 40?40?40?0, DROPS
  4. SODERM 1,22MG/G [Concomitant]
     Dosage: 1 MG, AS NEEDED

REACTIONS (3)
  - Fall [Recovering/Resolving]
  - Syncope [Recovering/Resolving]
  - Gait disturbance [Recovering/Resolving]
